FAERS Safety Report 12567703 (Version 1)
Quarter: 2016Q3

REPORT INFORMATION
  Report Type: Spontaneous
  Country: US (occurrence: US)
  Receive Date: 20160718
  Receipt Date: 20160718
  Transmission Date: 20161109
  Serious: No
  Sender: FDA-Public Use
  Company Number: US-TEVA-668027USA

PATIENT
  Sex: Male

DRUGS (7)
  1. COPAXONE [Suspect]
     Active Substance: GLATIRAMER ACETATE
     Indication: MULTIPLE SCLEROSIS
     Route: 058
     Dates: start: 20120526
  2. WARFARIN [Concomitant]
     Active Substance: WARFARIN
  3. NEURONTIN [Concomitant]
     Active Substance: GABAPENTIN
  4. LIORESAL [Concomitant]
     Active Substance: BACLOFEN
     Dosage: 10MG/20
  5. VIAGRA [Concomitant]
     Active Substance: SILDENAFIL CITRATE
  6. ZANAFLEX [Concomitant]
     Active Substance: TIZANIDINE HYDROCHLORIDE
  7. FLOMAX [Concomitant]
     Active Substance: TAMSULOSIN HYDROCHLORIDE

REACTIONS (5)
  - Palpitations [Recovered/Resolved]
  - Flushing [Recovered/Resolved]
  - Panic attack [Recovered/Resolved]
  - Anxiety [Recovered/Resolved]
  - Hyperhidrosis [Recovered/Resolved]
